FAERS Safety Report 7394535 (Version 3)
Quarter: 2013Q2

REPORT INFORMATION
  Report Type: Report from Study
  Country: DE (occurrence: DE)
  Receive Date: 20100520
  Receipt Date: 20130627
  Transmission Date: 20140414
  Serious: Yes (Life-Threatening, Hospitalization, Other)
  Sender: FDA-Public Use
  Company Number: DE-ROCHE-703796

PATIENT
  Age: 44 Year
  Sex: Male
  Weight: 105 kg

DRUGS (3)
  1. RIBAVIRIN [Suspect]
     Indication: CHRONIC HEPATITIS C
     Route: 048
     Dates: start: 20090722, end: 20100405
  2. RIBAVIRIN [Suspect]
     Route: 048
     Dates: start: 20100406, end: 20100623
  3. PEG-INTERFERON ALFA 2A [Suspect]
     Indication: CHRONIC HEPATITIS C
     Route: 058
     Dates: start: 20090722, end: 20100623

REACTIONS (3)
  - Anaemia [Recovered/Resolved]
  - Deep vein thrombosis [Recovered/Resolved]
  - Pulmonary embolism [Recovered/Resolved]
